FAERS Safety Report 9666633 (Version 1)
Quarter: 2013Q4

REPORT INFORMATION
  Report Type: Report from Study
  Country: VE (occurrence: VE)
  Receive Date: 20131104
  Receipt Date: 20131104
  Transmission Date: 20140711
  Serious: Yes (Hospitalization)
  Sender: FDA-Public Use
  Company Number: VE-SHIRE-ALL1-2013-07477

PATIENT
  Age: 15 Year
  Sex: Male
  Weight: 53 kg

DRUGS (6)
  1. IDURSULFASE [Suspect]
     Indication: MUCOPOLYSACCHARIDOSIS II
     Dosage: 30.21 MG (0.57 MG/KG), UNK
     Route: 041
     Dates: start: 20070510
  2. MELATONIN [Concomitant]
     Indication: SLEEP DISORDER
     Dosage: 6.0 MG, 1X/DAY:QD
     Route: 048
  3. FENOTEROL HYDROBROMIDE W/IPRATROPIUM BROMIDE [Concomitant]
     Indication: RESPIRATORY DISORDER
     Dosage: 25 GTT, 2X/DAY:BID
     Route: 055
  4. GLYCERIN                           /00200601/ [Concomitant]
     Indication: GASTROINTESTINAL DISORDER
     Dosage: 50 ML, 1X/DAY:QD
     Route: 054
  5. ALPRAZOLAM [Concomitant]
     Indication: SLEEP DISORDER
     Dosage: 4 MG, 1X/DAY:QD
     Route: 048
  6. CARBAMAZEPINE [Concomitant]
     Indication: NERVOUS SYSTEM DISORDER
     Dosage: 10 ML, 2X/DAY:BID
     Route: 048

REACTIONS (2)
  - Grand mal convulsion [Unknown]
  - Hydrocephalus [Unknown]
